FAERS Safety Report 6596657-X (Version None)
Quarter: 2010Q1

REPORT INFORMATION
  Report Type: 
  Country: None (occurrence: None)
  Receive Date: 20100223
  Receipt Date: 20100215
  Transmission Date: 20100710
  Serious: Yes (Hospitalization)
  Sender: FDA-Public Use
  Company Number: JP-ASTRAZENECA-2009SE23308

PATIENT
  Age: 71 Year
  Sex: Male
  Weight: 54 kg

DRUGS (3)
  1. DIPRIVAN [Suspect]
     Indication: INDUCTION OF ANAESTHESIA
     Route: 042
     Dates: start: 20090202, end: 20090202
  2. MUSCURATE [Suspect]
     Route: 042
     Dates: start: 20090202, end: 20090202
  3. FENTANYL CITRATE [Concomitant]
     Route: 042
     Dates: start: 20090202, end: 20090202

REACTIONS (1)
  - ANAPHYLACTIC SHOCK [None]
